APPROVED DRUG PRODUCT: MECLOFENAMATE SODIUM
Active Ingredient: MECLOFENAMATE SODIUM
Strength: EQ 50MG BASE
Dosage Form/Route: CAPSULE;ORAL
Application: A071710 | Product #001
Applicant: VITARINE PHARMACEUTICALS INC
Approved: Jun 15, 1988 | RLD: No | RS: No | Type: DISCN